FAERS Safety Report 24917218 (Version 1)
Quarter: 2025Q1

REPORT INFORMATION
  Report Type: Spontaneous
  Country: US (occurrence: None)
  Receive Date: 20250202
  Receipt Date: 20250202
  Transmission Date: 20250409
  Serious: No
  Sender: FDA-CTU
  Company Number: None

PATIENT
  Age: 14 Month
  Sex: Male
  Weight: 9.9 kg

DRUGS (2)
  1. CHILDRENS MOTRIN [Suspect]
     Active Substance: IBUPROFEN
     Indication: Pyrexia
     Dosage: 4 ML EVERY 8 HOURS ORAL ?
     Route: 048
     Dates: start: 20250125, end: 20250126
  2. VITAMIN D [Concomitant]
     Active Substance: VITAMIN D NOS

REACTIONS (5)
  - Product use complaint [None]
  - Urticaria [None]
  - Drug hypersensitivity [None]
  - Gastrointestinal disorder [None]
  - Food allergy [None]

NARRATIVE: CASE EVENT DATE: 20250126
